FAERS Safety Report 8036245-1 (Version None)
Quarter: 2012Q1

REPORT INFORMATION
  Report Type: 
  Country: None (occurrence: None)
  Receive Date: 20120111
  Receipt Date: 20120106
  Transmission Date: 20120608
  Serious: Yes (Life-Threatening)
  Sender: FDA-Public Use
  Company Number: FR-ELI_LILLY_AND_COMPANY-FR201201001699

PATIENT
  Sex: Male

DRUGS (1)
  1. GEMZAR [Suspect]
     Indication: BILE DUCT CANCER
     Dosage: 800 MG/M2, UNK
     Dates: start: 20110426, end: 20110922

REACTIONS (2)
  - INTERSTITIAL LUNG DISEASE [None]
  - ALVEOLITIS ALLERGIC [None]
